FAERS Safety Report 4963431-7 (Version None)
Quarter: 2006Q2

REPORT INFORMATION
  Report Type: 
  Country: None (occurrence: None)
  Receive Date: 20060405
  Receipt Date: 20060310
  Transmission Date: 20061013
  Serious: Yes (Death)
  Sender: FDA-Public Use
  Company Number: 2006UW04037

PATIENT
  Age: 75 Year
  Sex: Female

DRUGS (19)
  1. IRESSA [Suspect]
     Indication: NON-SMALL CELL LUNG CANCER
     Route: 048
     Dates: start: 20060118, end: 20060301
  2. ALLOPURINOL [Concomitant]
     Indication: GOUT
     Route: 048
  3. DEXAMETHASONE TAB [Concomitant]
     Indication: PAIN
     Route: 048
     Dates: start: 20060115
  4. HALOPERIDOL [Concomitant]
     Indication: ANXIETY
     Route: 048
     Dates: start: 20060110
  5. METFORMIN [Concomitant]
     Indication: DIABETES MELLITUS
     Route: 048
  6. CYTOTEC [Concomitant]
     Indication: ARTHRITIS
     Route: 048
  7. POTASSIUM CHLORIDE [Concomitant]
     Route: 048
  8. RANITIDINE [Concomitant]
     Indication: PROPHYLAXIS
     Route: 048
  9. ACETAMINOPHEN [Concomitant]
     Indication: PAIN
     Route: 048
  10. BISACODYL [Concomitant]
     Indication: CONSTIPATION
     Dates: start: 20060112
  11. LOMOTIL [Concomitant]
     Indication: DIARRHOEA
     Route: 048
     Dates: start: 20060110
  12. LACTULOSE [Concomitant]
     Indication: CONSTIPATION
     Dosage: 10-20 MG PRN PO
     Dates: start: 20060110
  13. LOPERAMIDE [Concomitant]
     Indication: DIARRHOEA
     Route: 048
     Dates: start: 20060110
  14. LORAZEPAM [Concomitant]
     Indication: ANXIETY
     Route: 048
     Dates: start: 20060110
  15. SENNA GLYCOSIDES [Concomitant]
     Indication: CONSTIPATION
     Dosage: 8.6-17.2 MG PRN PO
     Dates: start: 20060110
  16. TIMOLOL MALEATE [Concomitant]
     Indication: GLAUCOMA
     Route: 047
  17. CRESTOR [Concomitant]
     Indication: HYPERCHOLESTEROLAEMIA
     Route: 048
  18. GLYBURIDE [Concomitant]
     Indication: DIABETES MELLITUS
     Route: 048
  19. HYDROMORPHONE [Concomitant]
     Indication: PAIN
     Route: 048

REACTIONS (5)
  - BLOOD CREATININE INCREASED [None]
  - CARDIAC FAILURE [None]
  - CONSTIPATION [None]
  - DISEASE PROGRESSION [None]
  - PAIN [None]
